FAERS Safety Report 7010977-6 (Version None)
Quarter: 2010Q3

REPORT INFORMATION
  Report Type: 
  Country: None (occurrence: None)
  Receive Date: 20100923
  Receipt Date: 20090121
  Transmission Date: 20110219
  Serious: No
  Sender: FDA-Public Use
  Company Number: US-WYE-H06967708

PATIENT
  Sex: Female
  Weight: 90.8 kg

DRUGS (6)
  1. PREMARIN [Suspect]
     Indication: DISCOMFORT
     Dosage: 0.5 G (FREQUENCY UNSPECIFIED)
     Route: 067
     Dates: start: 20081118, end: 20081119
  2. AMLODIPINE BESYLATE [Concomitant]
  3. LECITHIN [Concomitant]
  4. ASCORBIC ACID [Concomitant]
  5. ESTRACE [Suspect]
  6. MULTI-VITAMINS [Concomitant]

REACTIONS (2)
  - BURNING SENSATION [None]
  - PAIN IN EXTREMITY [None]
